FAERS Safety Report 7647285-6 (Version None)
Quarter: 2011Q3

REPORT INFORMATION
  Report Type: 
  Country: None (occurrence: None)
  Receive Date: 20110801
  Receipt Date: 20110727
  Transmission Date: 20111222
  Serious: Yes (Other)
  Sender: FDA-Public Use
  Company Number: US-PFIZER INC-2011171965

PATIENT
  Sex: Male

DRUGS (2)
  1. CAVERJECT [Suspect]
     Dosage: 40MCG
  2. CAVERJECT [Suspect]
     Dosage: 20 MCG

REACTIONS (3)
  - DRUG INEFFECTIVE [None]
  - PROSTATE CANCER [None]
  - BLOOD TESTOSTERONE DECREASED [None]
